FAERS Safety Report 8270928-3 (Version None)
Quarter: 2012Q2

REPORT INFORMATION
  Report Type: 
  Country: None (occurrence: None)
  Receive Date: 20120410
  Receipt Date: 20120404
  Transmission Date: 20120825
  Serious: Yes (Other)
  Sender: FDA-Public Use
  Company Number: US-PFIZER INC-2012085836

PATIENT
  Sex: Female
  Weight: 61.224 kg

DRUGS (3)
  1. CENTRUM ADULTS UNDER 50 [Suspect]
     Dosage: DAILY
  2. CONJUGATED ESTROGENS [Suspect]
     Indication: MENOPAUSE
     Dosage: DAILY
  3. MULTI-VITAMINS [Suspect]
     Indication: VITAMIN SUPPLEMENTATION
     Dosage: DAILY

REACTIONS (8)
  - ARTHRITIS [None]
  - FATIGUE [None]
  - ENERGY INCREASED [None]
  - CONSTIPATION [None]
  - CEREBROVASCULAR ACCIDENT [None]
  - HEART RATE INCREASED [None]
  - SLEEP DISORDER [None]
  - WEIGHT INCREASED [None]
